FAERS Safety Report 8390463-1 (Version None)
Quarter: 2012Q2

REPORT INFORMATION
  Report Type: 
  Country: None (occurrence: None)
  Receive Date: 20120516
  Receipt Date: 20120503
  Transmission Date: 20120825
  Serious: Yes (Death, Life-Threatening)
  Sender: FDA-Public Use
  Company Number: 2012SP024821

PATIENT

DRUGS (3)
  1. TEMOZOLOMIDE [Suspect]
     Indication: GLIOBLASTOMA
     Dosage: 75 MG/M2;QD;PO
     Route: 048
  2. EVEROLIMUS [Suspect]
     Indication: GLIOBLASTOMA
     Dosage: 10 MG;QD; PO
     Route: 048
  3. BEVACIZUMAB [Suspect]
     Indication: GLIOBLASTOMA
     Dosage: 10 MG/KG; ;IV
     Route: 042

REACTIONS (9)
  - GASTROINTESTINAL PERFORATION [None]
  - FEBRILE NEUTROPENIA [None]
  - ISCHAEMIA [None]
  - MYOCARDIAL INFARCTION [None]
  - THROMBOCYTOPENIA [None]
  - FATIGUE [None]
  - EMBOLISM [None]
  - NERVOUS SYSTEM DISORDER [None]
  - NEUTROPENIA [None]
